FAERS Safety Report 9500495 (Version 3)
Quarter: 2013Q4

REPORT INFORMATION
  Report Type: Spontaneous
  Country: US (occurrence: None)
  Receive Date: 20130107
  Receipt Date: 20131226
  Transmission Date: 20140711
  Serious: Yes (Other)
  Sender: FDA-Public Use
  Company Number: PHEH2012US019603

PATIENT
  Age: 54 Year
  Sex: Male
  Weight: 83.9 kg

DRUGS (6)
  1. GILENYA [Suspect]
     Indication: RELAPSING-REMITTING MULTIPLE SCLEROSIS
     Route: 048
     Dates: start: 20111222, end: 20120918
  2. HYDROCHLOROTHIAZIDE (HYDROCHLOROTHIAZIDE) [Concomitant]
  3. LISINOPRIL (LISINOPRIL) [Concomitant]
  4. BACLOFEN (BACLOFEN) [Concomitant]
  5. VARDENAFIL (VARDENAFIL) [Concomitant]
  6. NAPROXEN (NAPROXEN) [Concomitant]

REACTIONS (2)
  - Macular oedema [None]
  - Alanine aminotransferase increased [None]
